FAERS Safety Report 6397921-X (Version None)
Quarter: 2009Q4

REPORT INFORMATION
  Report Type: 
  Country: None (occurrence: None)
  Receive Date: 20091006
  Receipt Date: 20090928
  Transmission Date: 20100525
  Serious: Yes (Other)
  Sender: FDA-Public Use
  Company Number: TRP_06456_2009

PATIENT
  Sex: Male

DRUGS (6)
  1. RIBAVARIN [Suspect]
     Indication: HEPATITIS C
     Dosage: 1000 MG, DAILY ORAL
     Route: 048
     Dates: start: 20090401, end: 20090826
  2. INFERGEN [Suspect]
     Indication: HEPATITIS C
     Dosage: 0.7 ML QD SUBCUTANEOUS
     Route: 058
     Dates: start: 20090725, end: 20090826
  3. PEG-INTRON [Suspect]
     Indication: HEPATITIS C
     Dosage: DF
     Dates: start: 20090401, end: 20090724
  4. MILK THISTLE [Concomitant]
  5. MULTI-VITAMINS [Concomitant]
  6. LIVER AID [Concomitant]

REACTIONS (8)
  - ALANINE AMINOTRANSFERASE INCREASED [None]
  - ALOPECIA [None]
  - ASPARTATE AMINOTRANSFERASE INCREASED [None]
  - FEELING ABNORMAL [None]
  - INSOMNIA [None]
  - METABOLIC DISORDER [None]
  - NERVOUSNESS [None]
  - TINNITUS [None]
